FAERS Safety Report 13959077 (Version 1)
Quarter: 2017Q3

REPORT INFORMATION
  Report Type: Spontaneous
  Country: US (occurrence: US)
  Receive Date: 20170912
  Receipt Date: 20170912
  Transmission Date: 20171128
  Serious: No
  Sender: FDA-Public Use
  Company Number: US-JNJFOC-20170823848

PATIENT
  Age: 69 Year
  Sex: Female
  Weight: 108.86 kg

DRUGS (4)
  1. ZYRTEC [Suspect]
     Active Substance: CETIRIZINE HYDROCHLORIDE
     Indication: MULTIPLE ALLERGIES
     Dosage: TWICE- 7 1/2 HOURS APART; TOOK FIRST DOSE AT 9:30 A.M., AND ANOTHER AFTER 5:00 P.M.
     Route: 048
     Dates: start: 20170824, end: 20170824
  2. ZYRTEC [Suspect]
     Active Substance: CETIRIZINE HYDROCHLORIDE
     Indication: VIRAL UPPER RESPIRATORY TRACT INFECTION
     Dosage: TWICE- 7 1/2 HOURS APART; TOOK FIRST DOSE AT 9:30 A.M., AND ANOTHER AFTER 5:00 P.M.
     Route: 048
     Dates: start: 20170824, end: 20170824
  3. ZYRTEC [Suspect]
     Active Substance: CETIRIZINE HYDROCHLORIDE
     Indication: NASAL CONGESTION
     Dosage: TWICE- 7 1/2 HOURS APART; TOOK FIRST DOSE AT 9:30 A.M., AND ANOTHER AFTER 5:00 P.M.
     Route: 048
     Dates: start: 20170824, end: 20170824
  4. ZYRTEC [Suspect]
     Active Substance: CETIRIZINE HYDROCHLORIDE
     Indication: RHINORRHOEA
     Dosage: TWICE- 7 1/2 HOURS APART; TOOK FIRST DOSE AT 9:30 A.M., AND ANOTHER AFTER 5:00 P.M.
     Route: 048
     Dates: start: 20170824, end: 20170824

REACTIONS (4)
  - Product label issue [Unknown]
  - Overdose [Unknown]
  - Expired product administered [Unknown]
  - Product use in unapproved indication [Unknown]

NARRATIVE: CASE EVENT DATE: 20170824
